FAERS Safety Report 6423057-5 (Version None)
Quarter: 2009Q4

REPORT INFORMATION
  Report Type: 
  Country: None (occurrence: None)
  Receive Date: 20091102
  Receipt Date: 20091021
  Transmission Date: 20100525
  Serious: Yes (Other)
  Sender: FDA-Public Use
  Company Number: CA-JNJFOC-20090306081

PATIENT
  Sex: Female
  Weight: 71.8 kg

DRUGS (1)
  1. REMICADE [Suspect]
     Indication: RHEUMATOID ARTHRITIS
     Dosage: 1ST INFUSION
     Route: 042
     Dates: start: 20090319

REACTIONS (4)
  - DIZZINESS [None]
  - INFUSION RELATED REACTION [None]
  - LYMPHADENOPATHY [None]
  - PARAESTHESIA [None]
